FAERS Safety Report 9947705 (Version 1)
Quarter: 2014Q1

REPORT INFORMATION
  Report Type: Spontaneous
  Country: US (occurrence: US)
  Receive Date: 20140303
  Receipt Date: 20140303
  Transmission Date: 20141002
  Serious: No
  Sender: FDA-Public Use
  Company Number: US-ABBVIE-13P-163-1060819-00

PATIENT
  Sex: Female
  Weight: 65.83 kg

DRUGS (2)
  1. HUMIRA [Suspect]
     Indication: CROHN^S DISEASE
     Dates: start: 201301
  2. CELEXA [Suspect]
     Indication: ANXIETY
     Dates: start: 201303

REACTIONS (3)
  - Discomfort [Recovering/Resolving]
  - Hypoaesthesia [Recovering/Resolving]
  - Restlessness [Recovering/Resolving]
